FAERS Safety Report 8382553-4 (Version None)
Quarter: 2012Q2

REPORT INFORMATION
  Report Type: 
  Country: None (occurrence: None)
  Receive Date: 20120524
  Receipt Date: 20120515
  Transmission Date: 20120825
  Serious: Yes (Other)
  Sender: FDA-Public Use
  Company Number: US-JNJFOC-20120504818

PATIENT
  Sex: Male
  Weight: 71.67 kg

DRUGS (9)
  1. METOPROLOL [Concomitant]
     Indication: HEART RATE
  2. XARELTO [Suspect]
     Indication: ANTICOAGULANT THERAPY
     Route: 048
     Dates: end: 20120424
  3. PREVACID [Concomitant]
  4. VITAMIN D [Concomitant]
  5. DIGOXIN [Concomitant]
     Indication: ARRHYTHMIA
  6. XARELTO [Suspect]
     Indication: ATRIAL FIBRILLATION
     Route: 048
     Dates: end: 20120424
  7. METOPROLOL [Concomitant]
     Indication: BLOOD PRESSURE
  8. DILTIAZEM [Concomitant]
     Indication: HEART RATE
  9. LOVENOX [Suspect]
     Indication: ANTICOAGULANT THERAPY
     Route: 058
     Dates: start: 20120425, end: 20120426

REACTIONS (1)
  - INTRACARDIAC THROMBUS [None]
